FAERS Safety Report 9436560 (Version 1)
Quarter: 2013Q3

REPORT INFORMATION
  Report Type: Spontaneous
  Country: US (occurrence: US)
  Receive Date: 20130802
  Receipt Date: 20130802
  Transmission Date: 20140515
  Serious: No
  Sender: FDA-Public Use
  Company Number: US-OPTIMER-20130184

PATIENT
  Age: 40 Year
  Sex: Male

DRUGS (3)
  1. FIDAXOMICIN [Suspect]
     Indication: CLOSTRIDIUM DIFFICILE COLITIS
     Dosage: UNK
     Dates: start: 20130108, end: 20130115
  2. CEFTRIAXONE [Concomitant]
     Dosage: UNK
     Dates: start: 20130108, end: 20130117
  3. LEVOFLOXACIN [Concomitant]
     Dosage: UNK
     Dates: start: 20130108, end: 20130117

REACTIONS (1)
  - White blood cell count increased [Unknown]
